FAERS Safety Report 14628599 (Version 2)
Quarter: 2018Q2

REPORT INFORMATION
  Report Type: Spontaneous
  Country: US (occurrence: US)
  Receive Date: 20180313
  Receipt Date: 20180404
  Transmission Date: 20180711
  Serious: No
  Sender: FDA-Public Use
  Company Number: US-TEVA-2018-US-864033

PATIENT
  Age: 68 Year
  Sex: Male
  Weight: 113.38 kg

DRUGS (2)
  1. ASPIRIN. [Concomitant]
     Active Substance: ASPIRIN
  2. MUCUS DM [Suspect]
     Active Substance: DEXTROMETHORPHAN HYDROBROMIDE\GUAIFENESIN
     Indication: COUGH
     Dosage: GUAIFENESIN 1200 MG, EXTROMETHORPHAN HYDROBROMIDE 60 MG)
     Route: 048
     Dates: start: 20180209, end: 20180211

REACTIONS (3)
  - Tinnitus [Recovered/Resolved]
  - Head discomfort [Recovered/Resolved]
  - Drug ineffective [Unknown]

NARRATIVE: CASE EVENT DATE: 20180209
